FAERS Safety Report 8265067-1 (Version None)
Quarter: 2012Q2

REPORT INFORMATION
  Report Type: 
  Country: None (occurrence: None)
  Receive Date: 20120406
  Receipt Date: 20120329
  Transmission Date: 20120825
  Serious: Yes (Death, Hospitalization)
  Sender: FDA-Public Use
  Company Number: US-NAPPMUNDI-USA-2011-0071396

PATIENT
  Sex: Male

DRUGS (2)
  1. OXYCONTIN [Suspect]
     Dosage: 320 MG, Q12H
  2. OXYCONTIN [Suspect]
     Indication: PAIN
     Dosage: 480 MG, BID
     Route: 048

REACTIONS (4)
  - NEOPLASM MALIGNANT [None]
  - ROAD TRAFFIC ACCIDENT [None]
  - PAIN [None]
  - INJURY [None]
